FAERS Safety Report 8011858-1 (Version None)
Quarter: 2011Q4

REPORT INFORMATION
  Report Type: 
  Country: None (occurrence: None)
  Receive Date: 20111228
  Receipt Date: 20111221
  Transmission Date: 20120403
  Serious: No
  Sender: FDA-Public Use
  Company Number: US-B.I. PHARMACEUTICALS,INC./RIDGEFIELD-2011-BP-16398BP

PATIENT
  Sex: Female
  Weight: 77.3 kg

DRUGS (11)
  1. PRADAXA [Suspect]
     Indication: ATRIAL FIBRILLATION
  2. OMEPRAZOLE [Concomitant]
  3. SERTRALINE HYDROCHLORIDE [Concomitant]
  4. LOSARTAN POTASSIUM [Concomitant]
  5. NASONEX [Concomitant]
  6. ZOLOFT [Concomitant]
  7. PRADAXA [Suspect]
     Indication: CARDIAC ASSISTANCE DEVICE USER
     Dosage: 300 MG
     Dates: end: 20111130
  8. CARVEDILOL [Concomitant]
     Dosage: 12.5 MG
  9. TERAZOSIN HCL [Concomitant]
  10. SYNTHROID [Concomitant]
  11. SIMVASTATIN [Concomitant]

REACTIONS (2)
  - MALAISE [None]
  - RECTAL HAEMORRHAGE [None]
